FAERS Safety Report 15769458 (Version 1)
Quarter: 2018Q4

REPORT INFORMATION
  Report Type: Spontaneous
  Country: US (occurrence: US)
  Receive Date: 20181218
  Receipt Date: 20181218
  Transmission Date: 20190205
  Serious: No
  Sender: FDA-Public Use
  Company Number: None

PATIENT
  Age: 2 Year
  Sex: Female

DRUGS (1)
  1. SODIUM FLUORIDE TABLET [Suspect]
     Active Substance: SODIUM FLUORIDE

REACTIONS (2)
  - Product dispensing error [None]
  - Extra dose administered [None]

NARRATIVE: CASE EVENT DATE: 2017
